FAERS Safety Report 12834496 (Version 1)
Quarter: 2016Q4

REPORT INFORMATION
  Report Type: Spontaneous
  Country: US (occurrence: US)
  Receive Date: 20161010
  Receipt Date: 20161010
  Transmission Date: 20170207
  Serious: Yes (Hospitalization, Other)
  Sender: FDA-Public Use
  Company Number: US-PFIZER INC-2016314411

PATIENT
  Age: 36 Year
  Sex: Female
  Weight: 61.69 kg

DRUGS (2)
  1. XELJANZ [Suspect]
     Active Substance: TOFACITINIB CITRATE
     Indication: CROHN^S DISEASE
     Dosage: 10 MG, 2X/DAY
     Route: 048
     Dates: start: 201510, end: 201607
  2. ENTOCORT [Concomitant]
     Active Substance: BUDESONIDE
     Indication: CROHN^S DISEASE
     Dosage: 3X/DAY

REACTIONS (5)
  - Device related infection [Recovered/Resolved]
  - Furuncle [Recovered/Resolved]
  - Abscess intestinal [Recovered/Resolved with Sequelae]
  - Abdominal adhesions [Unknown]
  - Product use issue [Unknown]

NARRATIVE: CASE EVENT DATE: 2016
